FAERS Safety Report 13700253 (Version 1)
Quarter: 2017Q2

REPORT INFORMATION
  Report Type: Spontaneous
  Country: US (occurrence: US)
  Receive Date: 20170628
  Receipt Date: 20170628
  Transmission Date: 20170830
  Serious: Yes (Hospitalization)
  Sender: FDA-Public Use
  Company Number: None

PATIENT
  Age: 68 Year
  Sex: Male
  Weight: 92.5 kg

DRUGS (1)
  1. IPILIMUMAB (BMS-734016; MDX-010 TRANSFECTOMA-DERIVED) [Suspect]
     Active Substance: IPILIMUMAB
     Dates: end: 20170612

REACTIONS (5)
  - Nausea [None]
  - Muscle spasms [None]
  - Vomiting [None]
  - Adrenal insufficiency [None]
  - Hyponatraemia [None]

NARRATIVE: CASE EVENT DATE: 20170620
